FAERS Safety Report 11769885 (Version 4)
Quarter: 2015Q4

REPORT INFORMATION
  Report Type: Spontaneous
  Country: JP (occurrence: JP)
  Receive Date: 20151123
  Receipt Date: 20151130
  Transmission Date: 20160304
  Serious: Yes (Hospitalization)
  Sender: FDA-Public Use
  Company Number: JP-SA-2015SA184080

PATIENT
  Age: 40 Year
  Sex: Male

DRUGS (13)
  1. GLIMEPIRIDE. [Suspect]
     Active Substance: GLIMEPIRIDE
     Indication: SUICIDE ATTEMPT
     Route: 048
  2. VILDAGLIPTIN [Concomitant]
     Active Substance: VILDAGLIPTIN
  3. ZOLPIDEM [Suspect]
     Active Substance: ZOLPIDEM\ZOLPIDEM TARTRATE
     Indication: SUICIDE ATTEMPT
     Route: 048
  4. ROSUVASTATIN [Concomitant]
     Active Substance: ROSUVASTATIN
  5. GLIMEPIRIDE. [Suspect]
     Active Substance: GLIMEPIRIDE
     Indication: DIABETES MELLITUS
     Route: 048
  6. GLIMEPIRIDE. [Suspect]
     Active Substance: GLIMEPIRIDE
     Indication: SUICIDE ATTEMPT
     Dosage: CONSUMED 14 TAB OF 3 MG EACH
     Route: 048
  7. ZOLPIDEM [Suspect]
     Active Substance: ZOLPIDEM\ZOLPIDEM TARTRATE
     Indication: SUICIDE ATTEMPT
     Dosage: CONSUMED 10 TAB OF 5 MG EACH
     Route: 048
  8. METHYLPREDNISOLONE. [Suspect]
     Active Substance: METHYLPREDNISOLONE
     Indication: PROPHYLAXIS
     Route: 065
  9. MITIGLINIDE [Concomitant]
     Active Substance: MITIGLINIDE
  10. GLIMEPIRIDE. [Suspect]
     Active Substance: GLIMEPIRIDE
     Indication: DIABETES MELLITUS
     Dosage: CONSUMED 14 TAB OF 3 MG EACH
     Route: 048
  11. METFORMIN [Concomitant]
     Active Substance: METFORMIN HYDROCHLORIDE
  12. BROTIZOLAM [Concomitant]
     Active Substance: BROTIZOLAM
  13. QUAZEPAM. [Concomitant]
     Active Substance: QUAZEPAM

REACTIONS (17)
  - Blood creatinine increased [Recovered/Resolved]
  - Suicide attempt [Recovered/Resolved]
  - Hypoglycaemia [Recovered/Resolved]
  - Aspartate aminotransferase increased [Recovered/Resolved]
  - Blood lactate dehydrogenase increased [Recovered/Resolved]
  - Altered state of consciousness [Recovered/Resolved]
  - Heart injury [Recovered/Resolved]
  - Intentional overdose [Unknown]
  - Tachycardia [Recovered/Resolved]
  - Loss of consciousness [Recovered/Resolved]
  - Blood creatine phosphokinase increased [Recovered/Resolved]
  - Blood creatine phosphokinase MB increased [Recovered/Resolved]
  - C-reactive protein increased [Recovered/Resolved]
  - White blood cell count increased [Recovered/Resolved]
  - Hyperglycaemia [Recovered/Resolved]
  - Blood pressure decreased [Recovered/Resolved]
  - Troponin I increased [Recovered/Resolved]
